FAERS Safety Report 7401730-X (Version None)
Quarter: 2011Q1

REPORT INFORMATION
  Report Type: 
  Country: None (occurrence: None)
  Receive Date: 20110329
  Receipt Date: 20110314
  Transmission Date: 20110831
  Serious: Yes (Hospitalization, Other)
  Sender: FDA-Public Use
  Company Number: AUR-APL-2011-01096

PATIENT
  Age: 64 Year
  Sex: Male

DRUGS (6)
  1. ACE INHIBITORS [Concomitant]
  2. SIMVASTATIN [Suspect]
     Indication: HYPERCHOLESTEROLAEMIA
     Dosage: 20MG-DAILY-ORAL
     Route: 048
     Dates: start: 20090326
  3. RAMIPRIL [Suspect]
     Indication: HYPERTENSION
     Dosage: 2.5MG-DAILY-ORAL
     Route: 048
     Dates: start: 20090326
  4. ANGIOTENSIN II ANTAGONISTS [Concomitant]
  5. BETA BLOCKING AGENTS [Concomitant]
  6. BISOPROLOL [Suspect]
     Indication: HYPERTENSION
     Dosage: 5MG-DAILY-ORAL
     Route: 048
     Dates: start: 20090122, end: 20090513

REACTIONS (4)
  - DIZZINESS [None]
  - FALL [None]
  - TRANSIENT ISCHAEMIC ATTACK [None]
  - CEREBROVASCULAR ACCIDENT [None]
